FAERS Safety Report 22022727 (Version 1)
Quarter: 2023Q1

REPORT INFORMATION
  Report Type: Spontaneous
  Country: US (occurrence: US)
  Receive Date: 20230222
  Receipt Date: 20230222
  Transmission Date: 20230417
  Serious: No
  Sender: FDA-Public Use
  Company Number: US-PFIZER INC-PV202300032607

PATIENT
  Sex: Female

DRUGS (3)
  1. SOMAVERT [Suspect]
     Active Substance: PEGVISOMANT
     Indication: Insulin-like growth factor
     Dosage: UNK
  2. SOMAVERT [Suspect]
     Active Substance: PEGVISOMANT
     Indication: Acromegaly
  3. SIGNIFOR LAR [Suspect]
     Active Substance: PASIREOTIDE PAMOATE
     Dosage: UNK

REACTIONS (1)
  - Drug ineffective [Unknown]
